FAERS Safety Report 13777838 (Version 1)
Quarter: 2017Q3

REPORT INFORMATION
  Report Type: Spontaneous
  Country: US (occurrence: US)
  Receive Date: 20170721
  Receipt Date: 20170721
  Transmission Date: 20171127
  Serious: No
  Sender: FDA-Public Use
  Company Number: PHEH2017US022508

PATIENT
  Age: 7 Year
  Sex: Male

DRUGS (1)
  1. MEKINIST [Suspect]
     Active Substance: TRAMETINIB DIMETHYL SULFOXIDE
     Indication: BRAIN CANCER METASTATIC
     Dosage: 1.5 MG, QOD (1 MG AND 1.5 MG EVERY OTHER DAY)
     Route: 048
     Dates: start: 20170630

REACTIONS (6)
  - Frustration tolerance decreased [Unknown]
  - Product use issue [Unknown]
  - Anger [Unknown]
  - Mood altered [Unknown]
  - Vision blurred [Unknown]
  - Product use in unapproved indication [Unknown]

NARRATIVE: CASE EVENT DATE: 20170630
